FAERS Safety Report 5381513-5 (Version None)
Quarter: 2007Q3

REPORT INFORMATION
  Report Type: 
  Country: None (occurrence: None)
  Receive Date: 20070703
  Receipt Date: 20070703
  Transmission Date: 20080115
  Serious: Yes (Disabling, Other)
  Sender: FDA-Public Use
  Company Number: None

PATIENT
  Sex: Female
  Weight: 45.3597 kg

DRUGS (2)
  1. SULINDAC [Suspect]
     Indication: ARTHRALGIA
     Dosage: 1 TABLET BID PO
     Route: 048
     Dates: start: 20050301, end: 20070630
  2. SULINDAC [Suspect]
     Indication: ARTHRITIS
     Dosage: 1 TABLET BID PO
     Route: 048
     Dates: start: 20050301, end: 20070630

REACTIONS (7)
  - DRUG DISPENSING ERROR [None]
  - DRY MOUTH [None]
  - DYSPHAGIA [None]
  - GASTROINTESTINAL DISORDER [None]
  - INFLUENZA LIKE ILLNESS [None]
  - PHARMACEUTICAL PRODUCT COMPLAINT [None]
  - WEIGHT DECREASED [None]
